FAERS Safety Report 8311186-0 (Version None)
Quarter: 2012Q2

REPORT INFORMATION
  Report Type: 
  Country: None (occurrence: None)
  Receive Date: 20120425
  Receipt Date: 20110425
  Transmission Date: 20120825
  Serious: No
  Sender: FDA-Public Use
  Company Number: US-MYLANLABS-2011S1008389

PATIENT
  Age: 92 Year
  Sex: Female

DRUGS (2)
  1. THYROID TAB [Concomitant]
  2. NITROFURANTOIN MONOHYDRATE/MACROCRYSTALS [Suspect]
     Indication: URINARY TRACT DISORDER
     Route: 048
     Dates: start: 20101001, end: 20101001

REACTIONS (2)
  - SENSORY LOSS [None]
  - FEELING ABNORMAL [None]
